FAERS Safety Report 12678341 (Version 4)
Quarter: 2016Q3

REPORT INFORMATION
  Report Type: Spontaneous
  Country: US (occurrence: US)
  Receive Date: 20160823
  Receipt Date: 20160929
  Transmission Date: 20161109
  Serious: Yes (Hospitalization, Other)
  Sender: FDA-Public Use
  Company Number: US-ACTELION-A-US2016-141001

PATIENT
  Age: 63 Year
  Sex: Female

DRUGS (12)
  1. VELETRI [Suspect]
     Active Substance: EPOPROSTENOL
     Indication: PULMONARY ARTERIAL HYPERTENSION
     Dosage: 45.2 NG/KG, PER MIN
     Route: 042
     Dates: start: 20120119
  2. TRAMADOL. [Concomitant]
     Active Substance: TRAMADOL
  3. PRILOSEC [Concomitant]
     Active Substance: OMEPRAZOLE MAGNESIUM
  4. LASIX [Concomitant]
     Active Substance: FUROSEMIDE
  5. METHIMAZOLE. [Concomitant]
     Active Substance: METHIMAZOLE
  6. TRACLEER [Suspect]
     Active Substance: BOSENTAN
     Indication: PULMONARY ARTERIAL HYPERTENSION
     Dosage: 125 MG, BID
     Route: 048
     Dates: start: 20020507
  7. LEVOTHYROXINE. [Concomitant]
     Active Substance: LEVOTHYROXINE
  8. WARFARIN [Concomitant]
     Active Substance: WARFARIN
  9. SPIRONOLACTONE. [Concomitant]
     Active Substance: SPIRONOLACTONE
  10. DILANTIN [Concomitant]
     Active Substance: PHENYTOIN
  11. POTASSIUM [Concomitant]
     Active Substance: POTASSIUM
  12. CYCLOBENZAPRINE [Concomitant]
     Active Substance: CYCLOBENZAPRINE

REACTIONS (5)
  - Fibula fracture [Unknown]
  - Fall [Unknown]
  - Foot fracture [Unknown]
  - Lower limb fracture [Unknown]
  - Femur fracture [Not Recovered/Not Resolved]
